FAERS Safety Report 7553736-8 (Version None)
Quarter: 2011Q2

REPORT INFORMATION
  Report Type: 
  Country: None (occurrence: None)
  Receive Date: 20110614
  Receipt Date: 20110614
  Transmission Date: 20111010
  Serious: Yes (Life-Threatening)
  Sender: FDA-Public Use
  Company Number: None

PATIENT
  Age: 77 Year
  Sex: Male
  Weight: 90.72 kg

DRUGS (1)
  1. FERUMOXYTOL [Suspect]
     Indication: IRON DEFICIENCY ANAEMIA
     Dosage: 510 MG ONE TIME IV BOLUS
     Route: 040
     Dates: start: 20110513, end: 20110513

REACTIONS (3)
  - IMMEDIATE POST-INJECTION REACTION [None]
  - FLUSHING [None]
  - CARDIO-RESPIRATORY ARREST [None]
